FAERS Safety Report 15440457 (Version 1)
Quarter: 2018Q3

REPORT INFORMATION
  Report Type: Spontaneous
  Country: US (occurrence: US)
  Receive Date: 20180928
  Receipt Date: 20180928
  Transmission Date: 20181010
  Serious: No
  Sender: FDA-Public Use
  Company Number: US-AMNEAL PHARMACEUTICALS-2018AMN00444

PATIENT
  Sex: Female

DRUGS (5)
  1. AMLODIPINE [Concomitant]
     Active Substance: AMLODIPINE BESYLATE
  2. FLEXURAL [Concomitant]
     Active Substance: CYCLOBENZAPRINE
  3. CLONIDINE. [Concomitant]
     Active Substance: CLONIDINE
  4. NORTRYPTILLINE [Concomitant]
  5. DICLOFENAC SODIUM. [Suspect]
     Active Substance: DICLOFENAC SODIUM
     Indication: ARTHRITIS
     Dosage: 2 G, 4X/DAY
     Route: 061
     Dates: start: 20180713, end: 20180713

REACTIONS (4)
  - Hypoaesthesia [Recovered/Resolved]
  - Blood pressure increased [Recovered/Resolved]
  - Paraesthesia [Recovered/Resolved]
  - Chest discomfort [Recovered/Resolved]
